FAERS Safety Report 8270686-2 (Version None)
Quarter: 2012Q2

REPORT INFORMATION
  Report Type: 
  Country: None (occurrence: None)
  Receive Date: 20120410
  Receipt Date: 20120313
  Transmission Date: 20120825
  Serious: Yes (Death)
  Sender: FDA-Public Use
  Company Number: US-ROCHE-1047286

PATIENT
  Sex: Male

DRUGS (10)
  1. XELODA [Suspect]
     Indication: COLON CANCER
     Dosage: (21 DAYS CYCLE, 14 DAYS ON AND 7 DAYS OFF)
  2. OXALIPLATIN [Concomitant]
  3. MULTIPLE VITAMIN [Concomitant]
     Route: 048
  4. FERROUS GLUCONATE [Concomitant]
     Route: 048
  5. DOCUSATE SODIUM [Concomitant]
     Dosage: AS REQUIRED
     Route: 048
  6. PROCHLORPERAZINE MALEATE [Concomitant]
     Dosage: AS REQUIRED
  7. AVASTIN [Suspect]
     Indication: COLON CANCER
  8. DEXAMETHASONE [Concomitant]
     Dosage: WITH CHEMOTHERAPY
  9. ONDANSETRON [Concomitant]
     Dosage: AS REQUIRED
  10. HYDROCODONE BITARTRATE AND ACETAMINOPHEN [Concomitant]
     Dosage: 5-500MG AS REQUIRED,QID

REACTIONS (4)
  - METASTATIC NEOPLASM [None]
  - METASTASES TO LIVER [None]
  - MUSCULAR WEAKNESS [None]
  - CONFUSIONAL STATE [None]
